FAERS Safety Report 9349732 (Version 3)
Quarter: 2013Q4

REPORT INFORMATION
  Report Type: Spontaneous
  Country: GB (occurrence: None)
  Receive Date: 20130611
  Receipt Date: 20131122
  Transmission Date: 20140711
  Serious: Yes (Disabling)
  Sender: FDA-Public Use
  Company Number: AUR-APL-2013-04668

PATIENT
  Sex: Male

DRUGS (5)
  1. MIRTAZAPINE (MIRTAZAPINE) [Concomitant]
  2. VENLAFAXINE (VENLAFAXINE) [Concomitant]
  3. LAMOTRIGINE (LAMOTRIGINE) [Suspect]
     Indication: PRODUCT USED FOR UNKNOWN INDICATION
     Dosage: 22 MG 1 IN 1 D UNKNOWN
     Dates: end: 20130501
  4. DEPAKOTE (VALPROATE SEMISODIUM) [Suspect]
     Indication: PRODUCT USED FOR UNKNOWN INDICATION
     Dosage: 500 MG, 1 IN 1 D UNKNOWN
  5. AMISULPRIDE (AMISULPRIDE) [Concomitant]

REACTIONS (5)
  - Rash [None]
  - Palpitations [None]
  - Sensation of heaviness [None]
  - Chest pain [None]
  - Restlessness [None]
